FAERS Safety Report 4782204-1 (Version None)
Quarter: 2005Q3

REPORT INFORMATION
  Report Type: 
  Country: None (occurrence: None)
  Receive Date: 20050927
  Receipt Date: 20050715
  Transmission Date: 20060218
  Serious: No
  Sender: FDA-Public Use
  Company Number: US_0507120295

PATIENT
  Age: 7 Year
  Sex: Female

DRUGS (2)
  1. STRATTERA [Suspect]
     Dosage: 25 MG/1 AT BEDTIME
  2. CONCERTA [Concomitant]

REACTIONS (2)
  - DELUSION [None]
  - HALLUCINATION [None]
